FAERS Safety Report 10871680 (Version 5)
Quarter: 2019Q1

REPORT INFORMATION
  Report Type: Spontaneous
  Country: US (occurrence: US)
  Receive Date: 20150226
  Receipt Date: 20190104
  Transmission Date: 20190417
  Serious: No
  Sender: FDA-Public Use
  Company Number: US-PFIZER INC-2015068267

PATIENT
  Age: 49 Year
  Sex: Female

DRUGS (5)
  1. REVATIO [Suspect]
     Active Substance: SILDENAFIL CITRATE
     Indication: PULMONARY HYPERTENSION
  2. NEURONTIN [Concomitant]
     Active Substance: GABAPENTIN
     Dosage: UNK
     Dates: start: 2008
  3. REVATIO [Suspect]
     Active Substance: SILDENAFIL CITRATE
     Indication: POOR PERIPHERAL CIRCULATION
  4. REVATIO [Suspect]
     Active Substance: SILDENAFIL CITRATE
     Indication: RAYNAUD^S PHENOMENON
     Dosage: 20 MG, 3X/DAY (TAKE ONE TABLET BY MOUTH THREE TIMES DAILY)
     Route: 048
     Dates: start: 2011
  5. REVATIO [Suspect]
     Active Substance: SILDENAFIL CITRATE
     Indication: SKIN ULCER
     Dosage: 30 MG, 3X/DAY
     Route: 048

REACTIONS (3)
  - Therapeutic response unexpected [Unknown]
  - Product use issue [Unknown]
  - Pre-existing condition improved [Unknown]
